FAERS Safety Report 24925363 (Version 1)
Quarter: 2025Q1

REPORT INFORMATION
  Report Type: Report from Study
  Country: US (occurrence: US)
  Receive Date: 20250204
  Receipt Date: 20250204
  Transmission Date: 20250409
  Serious: No
  Sender: EXELIXIS
  Company Number: US-EXELIXIS-CABO-24076810

PATIENT
  Age: 65 Year
  Sex: Female

DRUGS (15)
  1. CABOMETYX [Suspect]
     Active Substance: CABOZANTINIB S-MALATE
     Indication: Renal cell carcinoma
     Dosage: 40 MG, QD
     Dates: start: 20240313
  2. METFORMIN [Concomitant]
     Active Substance: METFORMIN HYDROCHLORIDE
  3. MIRALAX [Concomitant]
     Active Substance: POLYETHYLENE GLYCOL 3350
  4. Dulcolax [Concomitant]
  5. DEMANNOSE [Concomitant]
     Active Substance: DEMANNOSE
  6. TYLENOL [Concomitant]
     Active Substance: ACETAMINOPHEN
  7. LISINOPRIL [Concomitant]
     Active Substance: LISINOPRIL
  8. METOPROLOL SUCCINATE [Concomitant]
     Active Substance: METOPROLOL SUCCINATE
  9. LEVOTHYROXINE [Concomitant]
     Active Substance: LEVOTHYROXINE
  10. FUROSEMIDE [Concomitant]
     Active Substance: FUROSEMIDE
  11. DULOXETINE [Concomitant]
     Active Substance: DULOXETINE
  12. BACLOFEN [Concomitant]
     Active Substance: BACLOFEN
  13. CLARITIN [Concomitant]
     Active Substance: LORATADINE
  14. ROSUVASTATIN [Concomitant]
     Active Substance: ROSUVASTATIN
  15. VITAMIN C [Concomitant]
     Active Substance: ASCORBIC ACID

REACTIONS (9)
  - Blood pressure increased [Recovering/Resolving]
  - Blood magnesium decreased [Not Recovered/Not Resolved]
  - Constipation [Recovering/Resolving]
  - Oral pain [Not Recovered/Not Resolved]
  - Weight increased [Not Recovered/Not Resolved]
  - Ageusia [Not Recovered/Not Resolved]
  - Skin burning sensation [Not Recovered/Not Resolved]
  - Breast disorder [Not Recovered/Not Resolved]
  - Oropharyngeal discomfort [Not Recovered/Not Resolved]

NARRATIVE: CASE EVENT DATE: 20240508
